FAERS Safety Report 22263261 (Version 2)
Quarter: 2024Q1

REPORT INFORMATION
  Report Type: Spontaneous
  Country: US (occurrence: US)
  Receive Date: 20230428
  Receipt Date: 20240116
  Transmission Date: 20240410
  Serious: Yes (Hospitalization, Other)
  Sender: FDA-Public Use
  Company Number: US-ROCHE-3197528

PATIENT
  Age: 81 Year
  Sex: Female

DRUGS (6)
  1. CAPECITABINE [Suspect]
     Active Substance: CAPECITABINE
     Indication: Appendix cancer
     Dosage: TAKE 3 TABLET(S) BY MOUTH IN THE MORNING AND TAKE 2 TABLET(S) BY MOUTH IN THE EVENING 1 WEEK(S) ON
     Route: 048
     Dates: start: 2011
  2. CAPECITABINE [Suspect]
     Active Substance: CAPECITABINE
     Indication: Metastases to peritoneum
     Dosage: TAKE 3 TABLET(S) BY MOUTH IN THE MORNING AND TAKE 2 TABLET(S) BY MOUTH IN THE EVENING 1 WEEK(S) ON
     Route: 048
     Dates: start: 2011
  3. CAPECITABINE [Suspect]
     Active Substance: CAPECITABINE
     Indication: Retroperitoneal cancer
     Dosage: TAKE 3 TABLET(S) BY MOUTH IN THE MORNING AND TAKE 2 TABLET(S) BY MOUTH IN THE EVENING 1 WEEK(S) ON
     Route: 048
     Dates: start: 2011
  4. CAPECITABINE [Suspect]
     Active Substance: CAPECITABINE
     Indication: Appendix cancer
     Dosage: TAKE 2 TABLET(S) BY MOUTH (1000MG) IN THE MORNING AND IN THE EVENING 1 WEEK(S) ON, 1 WEEK(S) OFF
     Route: 048
  5. CAPECITABINE [Suspect]
     Active Substance: CAPECITABINE
     Indication: Metastases to peritoneum
     Dosage: TAKE 2 TABLET(S) BY MOUTH (1000MG) IN THE MORNING AND IN THE EVENING 1 WEEK(S) ON, 1 WEEK(S) OFF
     Route: 048
  6. CAPECITABINE [Suspect]
     Active Substance: CAPECITABINE
     Indication: Retroperitoneal cancer
     Dosage: TAKE 2 TABLET(S) BY MOUTH (1000MG) IN THE MORNING AND IN THE EVENING 1 WEEK(S) ON, 1 WEEK(S) OFF
     Route: 048

REACTIONS (6)
  - Dizziness [Unknown]
  - Diabetes mellitus [Not Recovered/Not Resolved]
  - Blood pressure measurement [Unknown]
  - Balance disorder [Unknown]
  - Malaise [Unknown]
  - Product use in unapproved indication [Unknown]
